FAERS Safety Report 24179892 (Version 1)
Quarter: 2024Q3

REPORT INFORMATION
  Report Type: Spontaneous
  Country: US (occurrence: None)
  Receive Date: 20240805
  Receipt Date: 20240805
  Transmission Date: 20241016
  Serious: Yes (Death)
  Sender: Public
  Company Number: None

PATIENT
  Age: 50 Year
  Sex: Female

DRUGS (7)
  1. YERVOY [Suspect]
     Active Substance: IPILIMUMAB
     Indication: Oropharyngeal neoplasm
     Dosage: 60MG DAILY INTRAVWNOUSLY?
     Route: 042
     Dates: start: 202108
  2. YERVOY [Suspect]
     Active Substance: IPILIMUMAB
     Indication: Salivary gland neoplasm
  3. OPDIVO [Suspect]
     Active Substance: NIVOLUMAB
     Indication: Oropharyngeal neoplasm
     Dosage: 240MG DAILY INTRAVWNOUSLY
     Route: 042
     Dates: start: 202108
  4. OPDIVO [Suspect]
     Active Substance: NIVOLUMAB
     Indication: Salivary gland neoplasm
  5. ONDANSETRON I-CL SDV [Concomitant]
  6. FAMOTIDINE SDV (2ML/VL) [Concomitant]
  7. LENVIMA DOSE [Concomitant]

REACTIONS (1)
  - Death [None]

NARRATIVE: CASE EVENT DATE: 20240731
